FAERS Safety Report 6022331-4 (Version None)
Quarter: 2008Q4

REPORT INFORMATION
  Report Type: 
  Country: None (occurrence: None)
  Receive Date: 20081230
  Receipt Date: 20080516
  Transmission Date: 20090506
  Serious: No
  Sender: FDA-Public Use
  Company Number: US-KINGPHARMUSA00001-K200800562

PATIENT
  Sex: Female

DRUGS (1)
  1. INTAL [Suspect]

REACTIONS (1)
  - HYPERSENSITIVITY [None]
